FAERS Safety Report 5700679-8 (Version None)
Quarter: 2008Q2

REPORT INFORMATION
  Report Type: 
  Country: None (occurrence: None)
  Receive Date: 20080410
  Receipt Date: 20080407
  Transmission Date: 20081010
  Serious: Yes (Other)
  Sender: FDA-Public Use
  Company Number: US-MERCK-0804USA01754

PATIENT
  Age: 17 Year
  Sex: Female

DRUGS (2)
  1. SINGULAIR [Suspect]
     Indication: HYPERSENSITIVITY
     Route: 048
     Dates: start: 19980101
  2. SINGULAIR [Suspect]
     Indication: ASTHMA
     Route: 048
     Dates: start: 19980101

REACTIONS (1)
  - SUICIDE ATTEMPT [None]
